FAERS Safety Report 4306621-9 (Version None)
Quarter: 2004Q1

REPORT INFORMATION
  Report Type: 
  Country: None (occurrence: None)
  Receive Date: 20040225
  Receipt Date: 20031001
  Transmission Date: 20041129
  Serious: No
  Sender: FDA-Public Use
  Company Number: US-BRISTOL-MYERS SQUIBB COMPANY-12425260

PATIENT
  Age: 40 Year
  Sex: Male
  Weight: 204 kg

DRUGS (1)
  1. EXCEDRIN (MIGRAINE) [Suspect]
     Indication: ARTHRALGIA
     Dosage: EVERY 10-12 HOURS.
     Route: 048
     Dates: start: 20030925, end: 20031001

REACTIONS (1)
  - DRUG EFFECT DECREASED [None]
